FAERS Safety Report 5338516-6 (Version None)
Quarter: 2007Q2

REPORT INFORMATION
  Report Type: 
  Country: None (occurrence: None)
  Receive Date: 20070405
  Receipt Date: 20061103
  Transmission Date: 20071010
  Serious: No
  Sender: FDA-Public Use
  Company Number: US200611000910

PATIENT
  Age: 63 Year
  Sex: Female
  Weight: 80.7 kg

DRUGS (7)
  1. CYMBALTA [Suspect]
     Indication: NEUROPATHY
     Dosage: SEE IMAGE
     Dates: start: 20041201
  2. AMBIEN [Concomitant]
  3. LASIX/SHS/ (FUROSEMIDE, FUROSEMIDE SODIUM) [Concomitant]
  4. POTASSIUM (POTASSIUM) [Concomitant]
  5. ATENOLOL [Concomitant]
  6. CALCIUM (CALCIUM ) [Concomitant]
  7. OSTEO BI-FLEX (CHONDROITIN SULFATE, GLUCOSAMINE HYDROCHLORIDE) [Concomitant]

REACTIONS (10)
  - DEPRESSION [None]
  - DRY MOUTH [None]
  - DYSPNOEA [None]
  - FLUID RETENTION [None]
  - HYPERHIDROSIS [None]
  - SPEECH DISORDER [None]
  - STOMATITIS [None]
  - SWOLLEN TONGUE [None]
  - TEMPOROMANDIBULAR JOINT SYNDROME [None]
  - TONGUE DISORDER [None]
